FAERS Safety Report 14747642 (Version 2)
Quarter: 2018Q2

REPORT INFORMATION
  Report Type: Spontaneous
  Country: US (occurrence: US)
  Receive Date: 20180411
  Receipt Date: 20180428
  Transmission Date: 20180711
  Serious: Yes (Other)
  Sender: FDA-Public Use
  Company Number: US-TEVA-2018-US-879634

PATIENT
  Age: 75 Year
  Sex: Female

DRUGS (5)
  1. OMEPRAZOLE. [Concomitant]
     Active Substance: OMEPRAZOLE
     Dosage: RECEIVED FOR MANY YEARS
     Route: 065
  2. OLMESARTAN [Suspect]
     Active Substance: OLMESARTAN
     Dosage: RECEIVED FOR MANY YEARS
     Route: 065
  3. METHOTREXATE. [Concomitant]
     Active Substance: METHOTREXATE
     Indication: ECZEMA
     Route: 065
  4. PAROXETINE. [Concomitant]
     Active Substance: PAROXETINE
     Dosage: RECEIVED FOR MANY YEARS
     Route: 065
  5. SIMVASTATIN. [Concomitant]
     Active Substance: SIMVASTATIN
     Dosage: RECEIVED FOR MANY YEARS
     Route: 065

REACTIONS (1)
  - Gastrointestinal disorder [Recovered/Resolved]
